FAERS Safety Report 4614549-X (Version None)
Quarter: 2005Q2

REPORT INFORMATION
  Report Type: 
  Country: None (occurrence: None)
  Receive Date: 20050307
  Receipt Date: 20041123
  Transmission Date: 20051028
  Serious: No
  Sender: FDA-Public Use
  Company Number: USA041184448

PATIENT
  Age: 53 Year
  Sex: Female

DRUGS (5)
  1. ALIMITA (PEMETREXED) [Suspect]
     Dates: start: 20041101
  2. VICODIN [Concomitant]
  3. VITAMIN B-12 [Concomitant]
  4. FOLIC ACID [Concomitant]
  5. DEXAMETHASONE [Concomitant]

REACTIONS (3)
  - BACK PAIN [None]
  - CHROMATURIA [None]
  - VAGINAL HAEMORRHAGE [None]
